FAERS Safety Report 6591004-1 (Version None)
Quarter: 2010Q1

REPORT INFORMATION
  Report Type: 
  Country: None (occurrence: None)
  Receive Date: 20100219
  Receipt Date: 20100209
  Transmission Date: 20100710
  Serious: Yes (Hospitalization, Other)
  Sender: FDA-Public Use
  Company Number: US-ELI_LILLY_AND_COMPANY-US201002002786

PATIENT
  Sex: Female

DRUGS (5)
  1. HUMULIN 50/50 [Suspect]
     Indication: DIABETES MELLITUS
     Dosage: 26 U, EACH MORNING
  2. HUMULIN 50/50 [Suspect]
     Dosage: 20 U, OTHER
  3. HUMULIN 50/50 [Suspect]
     Dosage: 24 U, EACH EVENING
  4. OXYGEN [Concomitant]
  5. INSULIN [Concomitant]

REACTIONS (16)
  - BLOOD CALCIUM INCREASED [None]
  - BLOOD CREATINE ABNORMAL [None]
  - BLOOD POTASSIUM INCREASED [None]
  - BLOOD UREA INCREASED [None]
  - CARPAL TUNNEL SYNDROME [None]
  - DIABETIC NEUROPATHY [None]
  - FALL [None]
  - FEMUR FRACTURE [None]
  - LOSS OF CONSCIOUSNESS [None]
  - LOWER LIMB FRACTURE [None]
  - OVERWEIGHT [None]
  - PATHOLOGICAL FRACTURE [None]
  - RENAL CELL CARCINOMA [None]
  - RENAL IMPAIRMENT [None]
  - VOMITING [None]
  - WEIGHT INCREASED [None]
